FAERS Safety Report 8051198-8 (Version None)
Quarter: 2012Q1

REPORT INFORMATION
  Report Type: 
  Country: None (occurrence: None)
  Receive Date: 20120117
  Receipt Date: 20120116
  Transmission Date: 20120608
  Serious: Yes (Death)
  Sender: FDA-Public Use
  Company Number: PHHY2011IT71584

PATIENT
  Sex: Male

DRUGS (2)
  1. METHERGINE [Suspect]
     Dosage: ONE AMPOULE OF 1 CC
  2. LOBELINE [Suspect]

REACTIONS (17)
  - TACHYPNOEA [None]
  - PULMONARY CONGESTION [None]
  - PULMONARY OEDEMA [None]
  - MUSCLE CONTRACTIONS INVOLUNTARY [None]
  - ADRENAL HAEMORRHAGE [None]
  - WRONG DRUG ADMINISTERED [None]
  - ERGOT POISONING [None]
  - DYSPNOEA [None]
  - HYPERTONIA [None]
  - MYDRIASIS [None]
  - PULMONARY HAEMORRHAGE [None]
  - PALLOR [None]
  - HYPOPNOEA [None]
  - CYANOSIS NEONATAL [None]
  - HEPATIC CONGESTION [None]
  - AREFLEXIA [None]
  - MENINGORRHAGIA [None]
